FAERS Safety Report 21758181 (Version 7)
Quarter: 2023Q1

REPORT INFORMATION
  Report Type: Report from Study
  Country: US (occurrence: US)
  Receive Date: 20221221
  Receipt Date: 20230306
  Transmission Date: 20230418
  Serious: No
  Sender: FDA-Public Use
  Company Number: US-002147023-NVSC2022US294799

PATIENT
  Sex: Female

DRUGS (2)
  1. KISQALI [Suspect]
     Active Substance: RIBOCICLIB
     Indication: Product used for unknown indication
     Dosage: UNK
     Route: 048
  2. KISQALI [Suspect]
     Active Substance: RIBOCICLIB
     Dosage: 600 MG
     Route: 065

REACTIONS (7)
  - Paraesthesia [Unknown]
  - Full blood count increased [Unknown]
  - Nasopharyngitis [Unknown]
  - Streptococcal infection [Unknown]
  - Sinusitis [Unknown]
  - Diarrhoea [Unknown]
  - Upper respiratory tract infection [Unknown]
